FAERS Safety Report 15436143 (Version 1)
Quarter: 2018Q3

REPORT INFORMATION
  Report Type: Spontaneous
  Country: KR (occurrence: KR)
  Receive Date: 20180927
  Receipt Date: 20180927
  Transmission Date: 20181010
  Serious: Yes (Other)
  Sender: FDA-Public Use
  Company Number: KR-VALIDUS PHARMACEUTICALS LLC-KR-2018VAL000925

PATIENT
  Sex: Female

DRUGS (7)
  1. CALCIUM CARBONATE. [Concomitant]
     Active Substance: CALCIUM CARBONATE
     Indication: HYPOCALCAEMIA
     Dosage: 75 MG/KG
     Route: 048
  2. CALCITRIOL. [Suspect]
     Active Substance: CALCITRIOL
     Indication: HYPOCALCAEMIA
     Dosage: 0.25 ?G
     Route: 042
  3. CALCITRIOL. [Suspect]
     Active Substance: CALCITRIOL
     Dosage: 1.5 ?G
     Route: 042
  4. CALCIUM CARBONATE. [Concomitant]
     Active Substance: CALCIUM CARBONATE
     Dosage: 20 MG/KG
     Route: 048
  5. CALCIUM CARBONATE. [Concomitant]
     Active Substance: CALCIUM CARBONATE
     Dosage: 40 MG/KG
     Route: 048
  6. CALCITRIOL. [Suspect]
     Active Substance: CALCITRIOL
     Dosage: 1.125 ?G
     Route: 042
  7. CALCIUM CARBONATE. [Concomitant]
     Active Substance: CALCIUM CARBONATE
     Dosage: 180 MG/KG
     Route: 048

REACTIONS (2)
  - Hypercalciuria [Unknown]
  - Nephrolithiasis [Unknown]
